FAERS Safety Report 8943863 (Version 2)
Quarter: 2012Q4

REPORT INFORMATION
  Report Type: 
  Country: GB (occurrence: GB)
  Receive Date: 20121204
  Receipt Date: 20121220
  Transmission Date: 20130627
  Serious: Yes (Other)
  Sender: FDA-Public Use
  Company Number: GB-TEVA-372184ISR

PATIENT
  Age: 59 Year
  Sex: Male

DRUGS (11)
  1. TAMSULOSIN [Suspect]
     Indication: PRODUCT USED FOR UNKNOWN INDICATION
     Dosage: UNK, unknown
     Route: 065
  2. FLUCLOXACILLIN [Suspect]
     Indication: CELLULITIS
     Dosage: 4 Gram Daily;
     Route: 042
     Dates: start: 20120926, end: 20120928
  3. PARACETAMOL [Concomitant]
     Indication: PRODUCT USED FOR UNKNOWN INDICATION
     Dosage: UNK
     Route: 065
  4. LANSOPRAZOLE [Concomitant]
     Indication: PRODUCT USED FOR UNKNOWN INDICATION
     Dosage: UNK
     Route: 065
  5. CODEINE [Concomitant]
     Indication: PRODUCT USED FOR UNKNOWN INDICATION
     Dosage: unk
     Route: 065
  6. TAMSULOSINE-RANBAXY [Concomitant]
     Indication: PRODUCT USED FOR UNKNOWN INDICATION
     Dosage: Ranbaxy brand
     Route: 065
  7. MACROGOL 3350 [Concomitant]
     Indication: PRODUCT USED FOR UNKNOWN INDICATION
     Dosage: unk
     Route: 065
  8. MORPHINE [Concomitant]
     Indication: PRODUCT USED FOR UNKNOWN INDICATION
     Dosage: unk
  9. CLINDAMYCIN [Concomitant]
     Indication: PRODUCT USED FOR UNKNOWN INDICATION
     Dosage: unk
  10. DICLOFENAC [Concomitant]
     Indication: PRODUCT USED FOR UNKNOWN INDICATION
     Dosage: unk
  11. BECLOMETHASONE DIPROPIONATE [Concomitant]
     Indication: PRODUCT USED FOR UNKNOWN INDICATION
     Dosage: unk

REACTIONS (2)
  - Drug-induced liver injury [Not Recovered/Not Resolved]
  - Liver function test abnormal [Recovering/Resolving]
